FAERS Safety Report 6901903-6 (Version None)
Quarter: 2010Q3

REPORT INFORMATION
  Report Type: 
  Country: None (occurrence: None)
  Receive Date: 20100803
  Receipt Date: 20080325
  Transmission Date: 20110219
  Serious: No
  Sender: FDA-Public Use
  Company Number: US-PFIZER INC-2008026758

PATIENT
  Sex: Female
  Weight: 72.7 kg

DRUGS (3)
  1. LYRICA [Suspect]
     Indication: FIBROMYALGIA
     Route: 048
     Dates: start: 20080301
  2. ABILIFY [Concomitant]
     Route: 048
  3. KLONOPIN [Concomitant]
     Route: 048

REACTIONS (1)
  - SOMNOLENCE [None]
